FAERS Safety Report 9615006 (Version 2)
Quarter: 2013Q4

REPORT INFORMATION
  Report Type: Spontaneous
  Country: PL (occurrence: PL)
  Receive Date: 20131011
  Receipt Date: 20131023
  Transmission Date: 20140711
  Serious: Yes (Life-Threatening, Other)
  Sender: FDA-Public Use
  Company Number: PL-RANBAXY-2013RR-73986

PATIENT
  Age: 14 Year
  Sex: Female

DRUGS (10)
  1. RISPERIDONE [Suspect]
     Indication: DEPRESSED MOOD
     Dosage: UNK
     Route: 065
  2. RISPERIDONE [Suspect]
     Indication: DISTURBANCE IN ATTENTION
  3. RISPERIDONE [Suspect]
     Indication: ABNORMAL BEHAVIOUR
  4. SERTRALINE [Suspect]
     Indication: DEPRESSED MOOD
     Dosage: UNK
     Route: 065
  5. SERTRALINE [Suspect]
     Indication: DISTURBANCE IN ATTENTION
  6. SERTRALINE [Suspect]
     Indication: ABNORMAL BEHAVIOUR
  7. SULPIRIDE [Suspect]
     Indication: DEPRESSED MOOD
     Dosage: UNK
     Route: 065
  8. SULPIRIDE [Suspect]
     Indication: DISTURBANCE IN ATTENTION
  9. SULPIRIDE [Suspect]
     Indication: ABNORMAL BEHAVIOUR
  10. INSULIN [Suspect]
     Indication: TYPE 1 DIABETES MELLITUS
     Dosage: 60 INSULIN UNITS, PER NIGHT
     Route: 051

REACTIONS (6)
  - Drug ineffective [Unknown]
  - Depression [Unknown]
  - Self injurious behaviour [Unknown]
  - Suicide attempt [Recovered/Resolved]
  - Intentional overdose [Recovered/Resolved]
  - Intentional drug misuse [Recovered/Resolved]
